FAERS Safety Report 7708047-4 (Version None)
Quarter: 2011Q3

REPORT INFORMATION
  Report Type: 
  Country: None (occurrence: None)
  Receive Date: 20110825
  Receipt Date: 20110821
  Transmission Date: 20111222
  Serious: Yes (Hospitalization)
  Sender: FDA-Public Use
  Company Number: US-BRISTOL-MYERS SQUIBB COMPANY-15978604

PATIENT
  Age: 86 Year
  Sex: Male
  Weight: 79 kg

DRUGS (2)
  1. IPILIMUMAB [Suspect]
     Indication: MALIGNANT MELANOMA
     Dosage: LT DS:28JUL11 TOTL COURSE:2 10MG/DY IV OVER 80MIN ON DY1,Q12 WKS CY:21DY(1-4),5+ COMPLET:14DOSES
     Route: 042
     Dates: start: 20110707
  2. LEUKINE [Suspect]
     Indication: MALIGNANT MELANOMA
     Dosage: LT DS:10AUG11 TOTAL COURSE:2 250MCG/DY SQ ON DAY 1-14 CYCLES:21DYS(1-4), 5+
     Route: 058
     Dates: start: 20110707

REACTIONS (2)
  - DEHYDRATION [None]
  - FATIGUE [None]
